FAERS Safety Report 16428218 (Version 1)
Quarter: 2019Q2

REPORT INFORMATION
  Report Type: Spontaneous
  Country: CA (occurrence: CA)
  Receive Date: 20190613
  Receipt Date: 20190613
  Transmission Date: 20190711
  Serious: Yes (Hospitalization, Other)
  Sender: FDA-Public Use
  Company Number: CA-PFIZER INC-2019251351

PATIENT
  Age: 37 Year
  Sex: Female

DRUGS (1)
  1. SOLU-MEDROL [Suspect]
     Active Substance: METHYLPREDNISOLONE SODIUM SUCCINATE
     Indication: COLITIS ULCERATIVE
     Dosage: 70 MG, UNK
     Route: 042
     Dates: start: 20190531

REACTIONS (3)
  - Intestinal ulcer [Unknown]
  - Colitis [Unknown]
  - Drug ineffective [Recovering/Resolving]
